FAERS Safety Report 16852921 (Version 2)
Quarter: 2019Q4

REPORT INFORMATION
  Report Type: Report from Study
  Country: US (occurrence: US)
  Receive Date: 20190925
  Receipt Date: 20191205
  Transmission Date: 20200122
  Serious: Yes (Hospitalization, Other)
  Sender: FDA-Public Use
  Company Number: US-BAUSCH-BL-2019-054752

PATIENT
  Sex: Female

DRUGS (1)
  1. DILTIAZEM. [Suspect]
     Active Substance: DILTIAZEM
     Indication: HYPERTENSION
     Dosage: STARTED ABOUT 4-5 YEARS
     Route: 065
     Dates: end: 2019

REACTIONS (11)
  - Insurance issue [Unknown]
  - Dyslipidaemia [Unknown]
  - Hypertension [Unknown]
  - Decreased appetite [Unknown]
  - Weight decreased [Unknown]
  - Stress [Unknown]
  - Nausea [Unknown]
  - Headache [Unknown]
  - Drug ineffective [Unknown]
  - Neuropathy peripheral [Unknown]
  - Anxiety [Unknown]

NARRATIVE: CASE EVENT DATE: 2019
